FAERS Safety Report 18018338 (Version 1)
Quarter: 2020Q3

REPORT INFORMATION
  Report Type: Other
  Country: US (occurrence: US)
  Receive Date: 20200713
  Receipt Date: 20200713
  Transmission Date: 20201103
  Serious: Yes (Other)
  Sender: FDA-Public Use
  Company Number: US-ROCHE-2639149

PATIENT
  Age: 22 Year
  Sex: Female

DRUGS (1)
  1. CLONAZEPAM. [Suspect]
     Active Substance: CLONAZEPAM
     Indication: PRODUCT USED FOR UNKNOWN INDICATION
     Route: 065

REACTIONS (5)
  - Depressed level of consciousness [Unknown]
  - Somnolence [Unknown]
  - Oxygen saturation decreased [Unknown]
  - Electrocardiogram abnormal [Unknown]
  - Overdose [Unknown]
